FAERS Safety Report 21216369 (Version 3)
Quarter: 2022Q4

REPORT INFORMATION
  Report Type: Spontaneous
  Country: US (occurrence: US)
  Receive Date: 20220816
  Receipt Date: 20221122
  Transmission Date: 20230112
  Serious: No
  Sender: FDA-Public Use
  Company Number: US-BRISTOL-MYERS SQUIBB COMPANY-2022-089959

PATIENT
  Age: 51 Year
  Sex: Male

DRUGS (3)
  1. POMALYST [Suspect]
     Active Substance: POMALIDOMIDE
     Indication: Muscle spasms
     Dosage: TAKE 1 CAPSULE BY MOUTH EVERY DAY ON DAYS 1-21 EVERY 28 DAYS
     Route: 048
     Dates: start: 20220616
  2. POMALYST [Suspect]
     Active Substance: POMALIDOMIDE
     Dosage: FREQ: TAKE 1 CAPSULE BY MOUTH DAILY ON DAYS 1-21 OF EVERY 28 DAYS
     Route: 048
     Dates: start: 20220616
  3. POMALYST [Suspect]
     Active Substance: POMALIDOMIDE
     Dosage: FREQ - TAKE 1 CAPSULE BY MOUTH DAILY ON DAYS 1 TO 21 EVERY 28 DAYS.
     Route: 048
     Dates: start: 20220616

REACTIONS (2)
  - Intentional product use issue [Unknown]
  - Product dose omission issue [Unknown]
